FAERS Safety Report 14689764 (Version 6)
Quarter: 2018Q3

REPORT INFORMATION
  Report Type: Spontaneous
  Country: US (occurrence: US)
  Receive Date: 20180328
  Receipt Date: 20180924
  Transmission Date: 20181010
  Serious: Yes (Congenital Anomaly, Other)
  Sender: FDA-Public Use
  Company Number: PHEH2018US011494

PATIENT
  Sex: Male

DRUGS (3)
  1. ZOFRAN [Suspect]
     Active Substance: ONDANSETRON HYDROCHLORIDE
     Indication: FOETAL EXPOSURE DURING PREGNANCY
     Dosage: MOTHER^S DOSE: 4MG/2ML
     Route: 064
  2. ZOFRAN [Suspect]
     Active Substance: ONDANSETRON HYDROCHLORIDE
     Indication: FOETAL EXPOSURE DURING PREGNANCY
     Dosage: MOTHER^S DOSE: 4 MG
     Route: 064
  3. ZOFRAN ODT [Suspect]
     Active Substance: ONDANSETRON HYDROCHLORIDE
     Indication: FOETAL EXPOSURE DURING PREGNANCY
     Route: 064

REACTIONS (27)
  - Low birth weight baby [Unknown]
  - Retinopathy of prematurity [Unknown]
  - Encopresis [Unknown]
  - Cardiac murmur [Unknown]
  - Asthma [Unknown]
  - Upper respiratory tract infection [Unknown]
  - Otitis media [Unknown]
  - Congenital aortic valve stenosis [Unknown]
  - Aortic valve incompetence [Unknown]
  - Gross motor delay [Unknown]
  - Feeding disorder [Unknown]
  - Urticaria [Unknown]
  - Constipation [Unknown]
  - Gastrooesophageal reflux disease [Unknown]
  - Aortic dilatation [Unknown]
  - Neonatal respiratory distress syndrome [Unknown]
  - Foetal exposure during pregnancy [Unknown]
  - Injury [Unknown]
  - Inguinal hernia [Recovered/Resolved]
  - Premature baby [Unknown]
  - Pulmonary valve incompetence [Unknown]
  - Anaemia neonatal [Unknown]
  - Conjunctivitis [Unknown]
  - Dermatitis atopic [Unknown]
  - Viral pharyngitis [Unknown]
  - Bicuspid aortic valve [Unknown]
  - Bronchiolitis [Unknown]

NARRATIVE: CASE EVENT DATE: 20100706
